FAERS Safety Report 20309193 (Version 4)
Quarter: 2022Q1

REPORT INFORMATION
  Report Type: Report from Study
  Country: GB (occurrence: GB)
  Receive Date: 20220107
  Receipt Date: 20220120
  Transmission Date: 20220423
  Serious: Yes (Hospitalization)
  Sender: FDA-Public Use
  Company Number: GB-ABBVIE-22K-167-4223934-00

PATIENT
  Age: 32 Year
  Sex: Female

DRUGS (19)
  1. HUMIRA [Suspect]
     Active Substance: ADALIMUMAB
     Indication: Colitis ulcerative
     Route: 058
     Dates: start: 20151025, end: 20160313
  2. AZATHIOPRINE [Suspect]
     Active Substance: AZATHIOPRINE
     Indication: Colitis ulcerative
     Route: 048
     Dates: start: 20160511, end: 20181204
  3. FOLIC ACID [Concomitant]
     Active Substance: FOLIC ACID
     Indication: Sickle cell disease
     Route: 048
     Dates: start: 201407
  4. ASACOL [Concomitant]
     Active Substance: MESALAMINE
     Indication: Colitis ulcerative
     Route: 048
     Dates: start: 201407
  5. ALLOPURINOL [Concomitant]
     Active Substance: ALLOPURINOL
     Indication: Colitis ulcerative
     Route: 048
     Dates: start: 201605
  6. ACETAMINOPHEN [Concomitant]
     Active Substance: ACETAMINOPHEN
     Indication: Sickle cell disease
     Dosage: AS REQUIRED
     Route: 048
     Dates: start: 2016
  7. TRAMADOL [Concomitant]
     Active Substance: TRAMADOL
     Indication: Sickle cell disease
     Dosage: AS REQUIRED
     Route: 048
     Dates: start: 2016
  8. TRAMADOL [Concomitant]
     Active Substance: TRAMADOL
     Dosage: 50-100 MG, AS REQUIRED
     Dates: start: 20211230, end: 20220103
  9. LIDOCAINE [Concomitant]
     Active Substance: LIDOCAINE
     Indication: Sickle cell disease
     Dosage: AS REQUIRED
     Route: 062
     Dates: start: 2016
  10. PREDNISOLONE [Concomitant]
     Active Substance: PREDNISOLONE
     Indication: Colitis ulcerative
     Route: 048
     Dates: start: 201604
  11. PREDNISOLONE [Concomitant]
     Active Substance: PREDNISOLONE
     Route: 048
     Dates: start: 20200213
  12. PREDNISOLONE [Concomitant]
     Active Substance: PREDNISOLONE
     Route: 048
     Dates: start: 20210307
  13. PENICILLIN V [Concomitant]
     Active Substance: PENICILLIN V
     Indication: Sickle cell disease
     Route: 048
     Dates: start: 201312
  14. COCODAMOL [Concomitant]
     Active Substance: ACETAMINOPHEN\CODEINE PHOSPHATE
     Indication: Sickle cell disease
     Dosage: 30/500 MG, AS REQUIRED
     Route: 048
     Dates: start: 2017
  15. COCODAMOL [Concomitant]
     Active Substance: ACETAMINOPHEN\CODEINE PHOSPHATE
     Dosage: 30/500 MG
     Route: 048
     Dates: start: 20211230
  16. CODEINE [Concomitant]
     Active Substance: CODEINE
     Indication: Sickle cell disease
     Dosage: AS REQUIRED
     Route: 048
     Dates: start: 201312
  17. OXYCODONE [Concomitant]
     Active Substance: OXYCODONE
     Indication: Sickle cell disease
     Dosage: AS REQUIRED
     Route: 048
     Dates: start: 201603
  18. OXYCODONE [Concomitant]
     Active Substance: OXYCODONE
     Indication: Pain management
     Route: 058
     Dates: start: 20210307
  19. USTEKINUMAB [Concomitant]
     Active Substance: USTEKINUMAB
     Indication: Colitis ulcerative
     Route: 058
     Dates: start: 20210917

REACTIONS (2)
  - Sickle cell anaemia with crisis [Not Recovered/Not Resolved]
  - COVID-19 [Not Recovered/Not Resolved]

NARRATIVE: CASE EVENT DATE: 20211229
